FAERS Safety Report 15227965 (Version 8)
Quarter: 2020Q3

REPORT INFORMATION
  Report Type: Report from Study
  Country: JP (occurrence: JP)
  Receive Date: 20180801
  Receipt Date: 20200828
  Transmission Date: 20201102
  Serious: Yes (Hospitalization)
  Sender: FDA-Public Use
  Company Number: JP-PFIZER INC-2018298365

PATIENT
  Age: 66 Year
  Sex: Male
  Weight: 79 kg

DRUGS (6)
  1. VINBLASTINE [Concomitant]
     Active Substance: VINBLASTINE
     Indication: HODGKIN^S DISEASE
     Dosage: UNK
     Dates: start: 20180320, end: 20180816
  2. PREDONINE [Concomitant]
     Active Substance: PREDNISOLONE
     Indication: RHEUMATOID ARTHRITIS
     Dosage: 5 MG, DAILY
     Route: 048
     Dates: end: 20190530
  3. DACARBAZINE. [Concomitant]
     Active Substance: DACARBAZINE
     Indication: HODGKIN^S DISEASE
     Dosage: UNK
     Dates: start: 20180320, end: 20180816
  4. PREDONINE [Concomitant]
     Active Substance: PREDNISOLONE
     Dosage: 6 MG, DAILY
     Route: 048
     Dates: start: 20190531
  5. DOXORUBICIN [Concomitant]
     Active Substance: DOXORUBICIN
     Indication: HODGKIN^S DISEASE
     Dosage: UNK
     Dates: start: 20180320, end: 20180816
  6. XELJANZ [Suspect]
     Active Substance: TOFACITINIB CITRATE
     Indication: RHEUMATOID ARTHRITIS
     Dosage: 5 MG, 1X/DAY
     Route: 048
     Dates: start: 20170428, end: 20171129

REACTIONS (2)
  - Hodgkin^s disease [Recovered/Resolved]
  - Condition aggravated [Recovered/Resolved]

NARRATIVE: CASE EVENT DATE: 20171130
